FAERS Safety Report 12405633 (Version 1)
Quarter: 2016Q2

REPORT INFORMATION
  Report Type: Spontaneous
  Country: US (occurrence: None)
  Receive Date: 20160525
  Receipt Date: 20160525
  Transmission Date: 20160815
  Serious: Yes (Disabling)
  Sender: FDA-Public Use
  Company Number: None

PATIENT
  Age: 57 Year
  Sex: Female
  Weight: 77.11 kg

DRUGS (10)
  1. HYDROCHLOROTHYAZIDE [Concomitant]
     Active Substance: HYDROCHLOROTHIAZIDE
  2. FISH OIL [Concomitant]
     Active Substance: FISH OIL
  3. TURMERIC [Concomitant]
     Active Substance: TURMERIC
  4. MOXIFLOXACIN. [Suspect]
     Active Substance: MOXIFLOXACIN
     Indication: SINUSITIS
     Route: 048
     Dates: start: 20160508, end: 20160513
  5. PROBIOTIC [Concomitant]
     Active Substance: PROBIOTICS NOS
  6. LISINOPRIL. [Concomitant]
     Active Substance: LISINOPRIL
  7. PRAVASTATIN [Concomitant]
     Active Substance: PRAVASTATIN\PRAVASTATIN SODIUM
  8. ASPIRIN. [Concomitant]
     Active Substance: ASPIRIN
  9. VITAMIN D [Concomitant]
     Active Substance: CHOLECALCIFEROL
  10. LORATIDINE [Concomitant]
     Active Substance: LORATADINE

REACTIONS (6)
  - Pain [None]
  - Peripheral swelling [None]
  - Body temperature increased [None]
  - Pain in extremity [None]
  - Skin burning sensation [None]
  - Neuropathy peripheral [None]

NARRATIVE: CASE EVENT DATE: 20160514
